FAERS Safety Report 8068219-9 (Version None)
Quarter: 2012Q1

REPORT INFORMATION
  Report Type: 
  Country: None (occurrence: None)
  Receive Date: 20120124
  Receipt Date: 20111004
  Transmission Date: 20120608
  Serious: No
  Sender: FDA-Public Use
  Company Number: US-AMGEN-USASP2011051243

PATIENT
  Age: 75 Year
  Sex: Female

DRUGS (2)
  1. MACROBID [Concomitant]
     Dosage: UNK UNK, PRN
  2. PROLIA [Suspect]
     Indication: OSTEOPOROSIS POSTMENOPAUSAL
     Dosage: 60 MG, Q6MO
     Route: 058
     Dates: start: 20100101, end: 20100101

REACTIONS (3)
  - ABDOMINAL PAIN UPPER [None]
  - ARTHRITIS [None]
  - OESOPHAGEAL INFECTION [None]
